FAERS Safety Report 6096141-6 (Version None)
Quarter: 2009Q1

REPORT INFORMATION
  Report Type: 
  Country: None (occurrence: None)
  Receive Date: 20090227
  Receipt Date: 20080905
  Transmission Date: 20090719
  Serious: No
  Sender: FDA-Public Use
  Company Number: A0747306A

PATIENT
  Sex: Female

DRUGS (1)
  1. LAMICTAL [Suspect]
     Route: 048
     Dates: start: 20080101

REACTIONS (4)
  - DRY SKIN [None]
  - INFECTION [None]
  - LYMPHADENOPATHY [None]
  - SKIN EXFOLIATION [None]
